FAERS Safety Report 9476278 (Version 1)
Quarter: 2013Q3

REPORT INFORMATION
  Report Type: Spontaneous
  Country: FR (occurrence: None)
  Receive Date: 20130813
  Receipt Date: 20130813
  Transmission Date: 20140515
  Serious: Yes (Hospitalization)
  Sender: FDA-Public Use
  Company Number: 0240721

PATIENT
  Sex: Female

DRUGS (2)
  1. TACHOSIL [Suspect]
  2. ALBUMIN [Suspect]

REACTIONS (1)
  - Hepatitis E [None]
